FAERS Safety Report 14650386 (Version 4)
Quarter: 2024Q4

REPORT INFORMATION
  Report Type: Spontaneous
  Country: UY (occurrence: UY)
  Receive Date: 20180316
  Receipt Date: 20241203
  Transmission Date: 20250115
  Serious: Yes (Hospitalization)
  Sender: TAKEDA
  Company Number: UY-SHIRE-UY201808700

PATIENT
  Age: 32 Year
  Sex: Female

DRUGS (7)
  1. VPRIV [Suspect]
     Active Substance: VELAGLUCERASE ALFA
     Indication: Gaucher^s disease
     Dosage: UNK
  2. VPRIV [Suspect]
     Active Substance: VELAGLUCERASE ALFA
     Indication: Supplementation therapy
     Dosage: UNK UNK, Q2WEEKS
     Dates: start: 2016
  3. VPRIV [Suspect]
     Active Substance: VELAGLUCERASE ALFA
     Dosage: 60 INTERNATIONAL UNIT/KILOGRAM
  4. VPRIV [Suspect]
     Active Substance: VELAGLUCERASE ALFA
     Dosage: UNK UNK, Q2WEEKS
  5. CALCIUM [Concomitant]
     Active Substance: CALCIUM
     Dosage: UNK
  6. VITAMIN D [Concomitant]
     Active Substance: VITAMIN D NOS
     Dosage: UNK
  7. VITAMIN B3 [Concomitant]
     Active Substance: NIACIN
     Dosage: UNK UNK, QD

REACTIONS (5)
  - Pain in extremity [Recovering/Resolving]
  - Arthralgia [Recovering/Resolving]
  - Respiratory symptom [Unknown]
  - COVID-19 [Unknown]
  - Infusion related reaction [Unknown]

NARRATIVE: CASE EVENT DATE: 20180127
